FAERS Safety Report 7397712-7 (Version None)
Quarter: 2011Q2

REPORT INFORMATION
  Report Type: 
  Country: None (occurrence: None)
  Receive Date: 20110406
  Receipt Date: 20110329
  Transmission Date: 20111010
  Serious: Yes (Other)
  Sender: FDA-Public Use
  Company Number: US-PFIZER INC-2010175656

PATIENT
  Sex: Female

DRUGS (1)
  1. CHANTIX [Suspect]
     Indication: SMOKING CESSATION THERAPY
     Dosage: UNK
     Dates: start: 20100925, end: 20101125

REACTIONS (10)
  - GINGIVAL PAIN [None]
  - ABDOMINAL PAIN [None]
  - GINGIVITIS [None]
  - NAUSEA [None]
  - VOMITING [None]
  - GINGIVAL BLEEDING [None]
  - TRAUMATIC HAEMATOMA [None]
  - ARTHRALGIA [None]
  - ORAL MUCOSAL EXFOLIATION [None]
  - EPISTAXIS [None]
